FAERS Safety Report 5065631-7 (Version None)
Quarter: 2006Q3

REPORT INFORMATION
  Report Type: 
  Country: None (occurrence: None)
  Receive Date: 20060725
  Receipt Date: 20060705
  Transmission Date: 20061208
  Serious: Yes (Death, Life-Threatening)
  Sender: FDA-Public Use
  Company Number: 200613060GDS

PATIENT
  Age: 61 Year
  Sex: Male

DRUGS (12)
  1. APROTININ [Suspect]
     Dosage: 10000 KIU, ONCE INTRAVENOUS (SEE IMAGE)
     Route: 042
  2. RAMIPRIL [Concomitant]
  3. ASPIRIN [Concomitant]
  4. ATENOLOL [Concomitant]
  5. HYDROCHLOROTHIAZIDE [Concomitant]
  6. AMLODIPINE [Concomitant]
  7. ETOMIDATE [Concomitant]
  8. MIDAZOLAM HYDROCHLORIDE [Concomitant]
  9. SUFENTANIL CITRATE [Concomitant]
  10. VECURONIUM BROMIDE [Concomitant]
  11. ISOFLURANE [Concomitant]
  12. CLINDAMYCIN [Concomitant]

REACTIONS (6)
  - CONDITION AGGRAVATED [None]
  - DISSEMINATED INTRAVASCULAR COAGULATION [None]
  - EMBOLISM VENOUS [None]
  - HYPOTENSION [None]
  - PULMONARY HYPERTENSION [None]
  - VENOUS THROMBOSIS [None]
